FAERS Safety Report 18582062 (Version 1)
Quarter: 2020Q4

REPORT INFORMATION
  Report Type: Spontaneous
  Country: US (occurrence: US)
  Receive Date: 20201204
  Receipt Date: 20201204
  Transmission Date: 20210114
  Serious: Yes (Hospitalization)
  Sender: FDA-Public Use
  Company Number: US-009507513-2011USA015755

PATIENT
  Age: 46 Year
  Sex: Female

DRUGS (2)
  1. PRINIVIL [Suspect]
     Active Substance: LISINOPRIL
     Route: 048
  2. PRINIVIL [Suspect]
     Active Substance: LISINOPRIL

REACTIONS (1)
  - Intestinal angioedema [Recovered/Resolved]
